FAERS Safety Report 14709471 (Version 1)
Quarter: 2018Q1

REPORT INFORMATION
  Report Type: Spontaneous
  Country: US (occurrence: US)
  Receive Date: 20180329
  Receipt Date: 20180329
  Transmission Date: 20180509
  Serious: Yes (Hospitalization)
  Sender: FDA-Public Use
  Company Number: None

PATIENT
  Age: 21 Year
  Sex: Female

DRUGS (2)
  1. ZOLOFT [Concomitant]
     Active Substance: SERTRALINE HYDROCHLORIDE
  2. MAKENA [Suspect]
     Active Substance: HYDROXYPROGESTERONE CAPROATE

REACTIONS (1)
  - Uterine contractions during pregnancy [None]

NARRATIVE: CASE EVENT DATE: 201803
